FAERS Safety Report 12367608 (Version 1)
Quarter: 2016Q2

REPORT INFORMATION
  Report Type: Report from Study
  Country: CA (occurrence: CA)
  Receive Date: 20160513
  Receipt Date: 20160513
  Transmission Date: 20160815
  Serious: Yes (Hospitalization)
  Sender: FDA-Public Use
  Company Number: CA-JNJFOC-20160504895

PATIENT
  Age: 79 Year
  Sex: Male

DRUGS (9)
  1. CRESTOR [Concomitant]
     Active Substance: ROSUVASTATIN CALCIUM
     Dosage: AT BEDTIME (BEFORE SLEEP)
     Route: 048
  2. DIOVAN [Concomitant]
     Active Substance: VALSARTAN
     Dosage: 1 TABLET PO (PER ORAL) DAILY WITH HCTZ(HYDROCHLOROTHIAZIDE)
     Route: 048
  3. HYDROCHLOROTHIAZIDE. [Concomitant]
     Active Substance: HYDROCHLOROTHIAZIDE
     Dosage: 1 TABLET PO (PER ORAL) DAILY WITH DIOVAN
     Route: 048
  4. AMIODARONE [Concomitant]
     Active Substance: AMIODARONE
     Dosage: 1 TABLET
     Route: 048
  5. ASA [Concomitant]
     Active Substance: ASPIRIN
     Dosage: 1 TABLET
     Route: 048
  6. SYNTHROID [Concomitant]
     Active Substance: LEVOTHYROXINE SODIUM
     Route: 048
  7. DEXILANT [Concomitant]
     Active Substance: DEXLANSOPRAZOLE
     Dosage: 2 TABLETS
     Route: 048
  8. SIMPONI [Suspect]
     Active Substance: GOLIMUMAB
     Indication: COLITIS ULCERATIVE
     Route: 058
     Dates: start: 20151123
  9. TYLENOL [Concomitant]
     Active Substance: ACETAMINOPHEN
     Dosage: 2 TABLETS 4 TIMES A DAY WHEN NECESSARY.
     Route: 048

REACTIONS (1)
  - Tuberculosis [Unknown]

NARRATIVE: CASE EVENT DATE: 20160502
